FAERS Safety Report 6468854-5 (Version None)
Quarter: 2009Q4

REPORT INFORMATION
  Report Type: 
  Country: None (occurrence: None)
  Receive Date: 20091203
  Receipt Date: 20090724
  Transmission Date: 20100525
  Serious: Yes (Hospitalization, Other)
  Sender: FDA-Public Use
  Company Number: US-ELI_LILLY_AND_COMPANY-US200605001126

PATIENT
  Sex: Male
  Weight: 143 kg

DRUGS (6)
  1. ZYPREXA [Suspect]
     Dosage: UNK, UNKNOWN
     Dates: start: 20000101, end: 20020101
  2. SEROQUEL [Concomitant]
     Dates: start: 20040101, end: 20060101
  3. RISPERDAL [Concomitant]
     Dates: start: 20040101, end: 20060101
  4. DEPAKOTE [Concomitant]
     Dates: start: 20040101, end: 20060101
  5. WELLBUTRIN [Concomitant]
     Dates: start: 20040101, end: 20060101
  6. HYDROCHLOROTHIAZIDE [Concomitant]
     Dates: start: 20050101

REACTIONS (12)
  - CARDIAC MURMUR [None]
  - DEPRESSION [None]
  - DIABETIC COMA [None]
  - DIABETIC KETOACIDOSIS [None]
  - GLYCOSURIA [None]
  - HYPERGLYCAEMIA [None]
  - HYPERTENSION [None]
  - MULTIPLE INJURIES [None]
  - OFF LABEL USE [None]
  - SEXUAL DYSFUNCTION [None]
  - TYPE 1 DIABETES MELLITUS [None]
  - WEIGHT INCREASED [None]
